FAERS Safety Report 6504057-3 (Version None)
Quarter: 2009Q4

REPORT INFORMATION
  Report Type: 
  Country: None (occurrence: None)
  Receive Date: 20091217
  Receipt Date: 20091211
  Transmission Date: 20100525
  Serious: Yes (Other)
  Sender: FDA-Public Use
  Company Number: US-PERRIGO-09US005695

PATIENT
  Sex: Female
  Weight: 54.422 kg

DRUGS (2)
  1. DAYTIME PE ORIG LIQ 656 [Suspect]
     Indication: NASOPHARYNGITIS
     Dosage: 30 ML, SINGLE (2 TABLESPOONS)
     Route: 048
     Dates: start: 20091206, end: 20091206
  2. DAYTIME PE ORIG LIQ 656 [Suspect]
     Indication: OROPHARYNGEAL PAIN

REACTIONS (4)
  - CONVULSION [None]
  - DIZZINESS [None]
  - LOSS OF CONSCIOUSNESS [None]
  - RETCHING [None]
